FAERS Safety Report 7334556-6 (Version None)
Quarter: 2011Q1

REPORT INFORMATION
  Report Type: 
  Country: None (occurrence: None)
  Receive Date: 20110224
  Receipt Date: 20110210
  Transmission Date: 20110831
  Serious: Yes (Other)
  Sender: FDA-Public Use
  Company Number: 027318

PATIENT
  Sex: Male

DRUGS (14)
  1. FOLACIN /00198401/ [Concomitant]
  2. CLONAZEPAM [Concomitant]
  3. IDEOS /00944201/ [Concomitant]
  4. KEPPRA [Suspect]
     Indication: EPILEPSY
     Dosage: (500 MG ORAL)
     Route: 048
     Dates: start: 20101105, end: 20101201
  5. FOSAMAX [Concomitant]
  6. LAMICTAL [Concomitant]
  7. RISPERIDONE [Concomitant]
  8. DUPHALAC [Concomitant]
  9. CHLORHEXIDINE-SODIUM FLUORIDE [Concomitant]
  10. ABILIFY [Concomitant]
  11. BETOLVIDON [Concomitant]
  12. ALVEDON [Concomitant]
  13. DIAZEPAM [Concomitant]
  14. ATARAX [Concomitant]

REACTIONS (2)
  - SCAB [None]
  - LEUKOCYTOCLASTIC VASCULITIS [None]
